FAERS Safety Report 8133376-2 (Version None)
Quarter: 2012Q1

REPORT INFORMATION
  Report Type: 
  Country: None (occurrence: None)
  Receive Date: 20120103
  Receipt Date: 20110921
  Transmission Date: 20120608
  Serious: No
  Sender: FDA-Public Use
  Company Number: AE-2011-001151

PATIENT
  Age: 45 Year
  Sex: Male

DRUGS (3)
  1. INCIVEK [Suspect]
     Dosage: ORAL
     Route: 048
     Dates: start: 20110701
  2. PEGINTERFERON (PEGINTERFERON ALFA-2A) [Concomitant]
  3. RIBAVIRIN [Concomitant]

REACTIONS (3)
  - HAEMORRHOIDS [None]
  - CONTUSION [None]
  - ALOPECIA [None]
